FAERS Safety Report 17538784 (Version 3)
Quarter: 2020Q4

REPORT INFORMATION
  Report Type: Report from Study
  Country: US (occurrence: US)
  Receive Date: 20200313
  Receipt Date: 20201026
  Transmission Date: 20210113
  Serious: No
  Sender: FDA-Public Use
  Company Number: US-KYOWAKIRIN-2020BKK003805

PATIENT

DRUGS (5)
  1. DONEPEZIL. [Concomitant]
     Active Substance: DONEPEZIL
     Indication: PRODUCT USED FOR UNKNOWN INDICATION
     Dosage: UNK
     Route: 065
  2. NOURIANZ [Suspect]
     Active Substance: ISTRADEFYLLINE
     Indication: PARKINSON^S DISEASE
     Dosage: 40 MG, QD
     Route: 048
     Dates: start: 2020
  3. NOURIANZ [Suspect]
     Active Substance: ISTRADEFYLLINE
     Indication: PARKINSON^S DISEASE
     Dosage: 20 MG, QD
     Route: 065
     Dates: start: 20191203, end: 20200602
  4. SINEMET [Concomitant]
     Active Substance: CARBIDOPA\LEVODOPA
     Indication: PRODUCT USED FOR UNKNOWN INDICATION
     Dosage: UNK
     Route: 065
  5. FLUDROCORTISONE [Concomitant]
     Active Substance: FLUDROCORTISONE
     Indication: PRODUCT USED FOR UNKNOWN INDICATION
     Dosage: UNK
     Route: 065

REACTIONS (2)
  - Fall [Recovered/Resolved]
  - Tremor [Not Recovered/Not Resolved]

NARRATIVE: CASE EVENT DATE: 202002
